FAERS Safety Report 25716363 (Version 1)
Quarter: 2025Q3

REPORT INFORMATION
  Report Type: Report from Study
  Country: US (occurrence: US)
  Receive Date: 20250822
  Receipt Date: 20250822
  Transmission Date: 20251021
  Serious: Yes (Hospitalization)
  Sender: VERONA PHARMA
  Company Number: US-VERONA PHARMA-VER-003553

PATIENT
  Sex: Female

DRUGS (1)
  1. OHTUVAYRE [Suspect]
     Active Substance: ENSIFENTRINE
     Indication: Bronchitis chronic
     Dosage: 3 MILLIGRAM, BID
     Dates: start: 202502

REACTIONS (4)
  - Movement disorder [Unknown]
  - Dyspnoea [Unknown]
  - Mental status changes [Unknown]
  - Screaming [Unknown]
